FAERS Safety Report 17418515 (Version 1)
Quarter: 2020Q1

REPORT INFORMATION
  Report Type: Spontaneous
  Country: JP (occurrence: JP)
  Receive Date: 20200214
  Receipt Date: 20200214
  Transmission Date: 20200409
  Serious: Yes (Other)
  Sender: FDA-Public Use
  Company Number: JP-GLAXOSMITHKLINE-JP2020024790

PATIENT
  Sex: Male

DRUGS (2)
  1. TAMSULOSIN HYDROCHLORIDE. [Concomitant]
     Active Substance: TAMSULOSIN HYDROCHLORIDE
     Indication: BENIGN PROSTATIC HYPERPLASIA
     Dosage: UNK
     Route: 048
     Dates: start: 201908
  2. AVOLVE [Suspect]
     Active Substance: DUTASTERIDE
     Indication: BENIGN PROSTATIC HYPERPLASIA
     Dosage: 0.5 MG, QD
     Route: 048
     Dates: start: 20191008, end: 20191011

REACTIONS (4)
  - Gastrooesophageal reflux disease [Recovered/Resolved]
  - Urinary retention [Unknown]
  - Abdominal pain [Unknown]
  - Dyspepsia [Recovered/Resolved]

NARRATIVE: CASE EVENT DATE: 201910
